FAERS Safety Report 4911124-4 (Version None)
Quarter: 2006Q1

REPORT INFORMATION
  Report Type: 
  Country: None (occurrence: None)
  Receive Date: 20060209
  Receipt Date: 20060127
  Transmission Date: 20060701
  Serious: Yes (Hospitalization)
  Sender: FDA-Public Use
  Company Number: 2005172117

PATIENT
  Age: 24 Year
  Sex: Female
  Weight: 80 kg

DRUGS (1)
  1. LYRICA [Suspect]
     Indication: NEURALGIA
     Dosage: 75 MG (1 IN 1 D), ORAL
     Route: 048
     Dates: start: 20051214

REACTIONS (9)
  - AKATHISIA [None]
  - CRYING [None]
  - FATIGUE [None]
  - HYPERVENTILATION [None]
  - INAPPROPRIATE AFFECT [None]
  - MOOD SWINGS [None]
  - OVERDOSE [None]
  - PSYCHOMOTOR HYPERACTIVITY [None]
  - RESTLESSNESS [None]
